FAERS Safety Report 5603388-9 (Version None)
Quarter: 2008Q1

REPORT INFORMATION
  Report Type: 
  Country: None (occurrence: None)
  Receive Date: 20080123
  Receipt Date: 20080107
  Transmission Date: 20080703
  Serious: Yes (Other)
  Sender: FDA-Public Use
  Company Number: 8027474

PATIENT
  Age: 13 Year
  Sex: Female
  Weight: 40 kg

DRUGS (5)
  1. KEPPRA [Suspect]
  2. FRISIUM [Concomitant]
  3. ALDACTONE [Concomitant]
  4. LASIX [Concomitant]
  5. ELTROXIN [Concomitant]

REACTIONS (5)
  - GAMMA-GLUTAMYLTRANSFERASE INCREASED [None]
  - GENERALISED OEDEMA [None]
  - HEPATIC ENZYME INCREASED [None]
  - HEPATOCELLULAR INJURY [None]
  - HYPOALBUMINAEMIA [None]
